FAERS Safety Report 9994115 (Version 1)
Quarter: 2014Q1

REPORT INFORMATION
  Report Type: Spontaneous
  Country: FR (occurrence: FR)
  Receive Date: 20140310
  Receipt Date: 20140310
  Transmission Date: 20141002
  Serious: Yes (Death, Other)
  Sender: FDA-Public Use
  Company Number: FR-CELGENEUS-056-50794-14024622

PATIENT
  Age: 69 Year
  Sex: Male
  Weight: 77 kg

DRUGS (3)
  1. VIDAZA [Suspect]
     Indication: MYELODYSPLASTIC SYNDROME
     Route: 058
     Dates: start: 20100111, end: 20110202
  2. PLATELETS [Concomitant]
     Indication: PRODUCT USED FOR UNKNOWN INDICATION
     Dosage: .1429 DOSAGE FORMS
     Route: 065
  3. RED BLOOD CELLS [Concomitant]
     Indication: PRODUCT USED FOR UNKNOWN INDICATION
     Dosage: .0714 DOSAGE FORMS
     Route: 065

REACTIONS (3)
  - Acute myeloid leukaemia [Fatal]
  - Acute myeloid leukaemia [Unknown]
  - Infection [Unknown]
